FAERS Safety Report 10452308 (Version 3)
Quarter: 2014Q4

REPORT INFORMATION
  Report Type: Spontaneous
  Country: JP (occurrence: JP)
  Receive Date: 20140915
  Receipt Date: 20141126
  Transmission Date: 20150528
  Serious: Yes (Hospitalization)
  Sender: FDA-Public Use
  Company Number: PHHY2012JP136158

PATIENT
  Age: 82 Year
  Sex: Male

DRUGS (12)
  1. DOMPERIDONE [Concomitant]
     Active Substance: DOMPERIDONE
     Indication: PRODUCT USED FOR UNKNOWN INDICATION
     Dosage: 10 MG, TID (AS NEEDED)
     Route: 065
  2. EXELON PATCH [Suspect]
     Active Substance: RIVASTIGMINE
     Dosage: 13.5 MG, DAILY
     Route: 062
     Dates: start: 2012
  3. EXELON PATCH [Suspect]
     Active Substance: RIVASTIGMINE
     Dosage: 4.5 MG, DAILY
     Route: 062
     Dates: start: 20120613
  4. TIAPRIDE HYDROCHLORIDE [Concomitant]
     Active Substance: TIAPRIDE HYDROCHLORIDE
     Indication: PRODUCT USED FOR UNKNOWN INDICATION
     Route: 065
  5. EXELON PATCH [Suspect]
     Active Substance: RIVASTIGMINE
     Dosage: 9 MG, DAILY
     Route: 062
     Dates: start: 2012
  6. LIPITOR [Concomitant]
     Active Substance: ATORVASTATIN CALCIUM
     Indication: HYPERLIPIDAEMIA
     Dosage: 10 MG, UNK
     Route: 048
  7. HEPADERM [Concomitant]
     Indication: APPLICATION SITE ERYTHEMA
     Dosage: UNK
     Route: 065
     Dates: start: 20120810
  8. EXELON PATCH [Suspect]
     Active Substance: RIVASTIGMINE
     Dosage: 18 MG, DAILY
     Route: 062
  9. RINDERON VG [Concomitant]
     Active Substance: BETAMETHASONE VALERATE\GENTAMICIN SULFATE
     Indication: APPLICATION SITE ERYTHEMA
     Dosage: UNK
     Route: 065
     Dates: start: 20120810
  10. EXELON PATCH [Suspect]
     Active Substance: RIVASTIGMINE
     Dosage: 4.5 MG, DAILY
     Route: 062
  11. EXELON PATCH [Suspect]
     Active Substance: RIVASTIGMINE
     Indication: DEMENTIA ALZHEIMER^S TYPE
     Dosage: 4.5 MG, DAILY
     Route: 062
     Dates: start: 201206
  12. LIPITOR [Concomitant]
     Active Substance: ATORVASTATIN CALCIUM
     Indication: HYPERTENSION

REACTIONS (8)
  - Decreased appetite [Unknown]
  - Application site erythema [Recovered/Resolved]
  - Gastritis erosive [Recovered/Resolved]
  - Large intestine polyp [Recovered/Resolved]
  - Delirium [Recovered/Resolved]
  - Wrong technique in drug usage process [Unknown]
  - Application site pruritus [Recovered/Resolved]
  - Vomiting [Unknown]

NARRATIVE: CASE EVENT DATE: 20120614
